FAERS Safety Report 6978688-0 (Version None)
Quarter: 2010Q3

REPORT INFORMATION
  Report Type: 
  Country: None (occurrence: None)
  Receive Date: 20100913
  Receipt Date: 20100831
  Transmission Date: 20110219
  Serious: Yes (Hospitalization)
  Sender: FDA-Public Use
  Company Number: A0880556A

PATIENT
  Age: 76 Year
  Sex: Male
  Weight: 81.8 kg

DRUGS (11)
  1. RANITIDINE [Suspect]
     Route: 042
     Dates: start: 20051122
  2. ZOFRAN [Suspect]
     Route: 042
     Dates: start: 20051122, end: 20051122
  3. PACLITAXEL [Suspect]
     Indication: NON-SMALL CELL LUNG CANCER
     Dosage: 200MGM2 EVERY 3 WEEKS
     Route: 042
     Dates: start: 20051122, end: 20051122
  4. FENTANYL CITRATE [Suspect]
     Route: 061
     Dates: start: 20051121
  5. DILAUDID [Suspect]
     Route: 048
     Dates: start: 20051114, end: 20051122
  6. DECADRON [Suspect]
     Route: 042
     Dates: start: 20051122, end: 20060203
  7. BENADRYL [Suspect]
     Route: 042
     Dates: start: 20051122, end: 20051122
  8. GABAPENTIN [Concomitant]
     Dates: start: 20051121
  9. METOPROLOL TARTRATE [Concomitant]
     Dates: start: 20051027, end: 20051205
  10. NORVASC [Concomitant]
     Dates: start: 20051027, end: 20051205
  11. HYDROCHLOROTHIAZIDE [Concomitant]
     Dates: start: 20051027, end: 20051205

REACTIONS (2)
  - DEPRESSED LEVEL OF CONSCIOUSNESS [None]
  - OXYGEN SATURATION DECREASED [None]
